FAERS Safety Report 17764836 (Version 2)
Quarter: 2021Q3

REPORT INFORMATION
  Report Type: Spontaneous
  Country: US (occurrence: US)
  Receive Date: 20200511
  Receipt Date: 20210907
  Transmission Date: 20211014
  Serious: No
  Sender: FDA-Public Use
  Company Number: US-TEVA-2020-US-1232998

PATIENT
  Sex: Female

DRUGS (2)
  1. TIAGABINE HYDROCHLORIDE TEVA [Suspect]
     Active Substance: TIAGABINE HYDROCHLORIDE
     Route: 065
  2. TIAGABINE HYDROCHLORIDE TEVA [Suspect]
     Active Substance: TIAGABINE HYDROCHLORIDE
     Indication: ANXIETY
     Route: 065

REACTIONS (6)
  - Drug screen positive [Unknown]
  - Somnolence [Unknown]
  - Therapeutic product effect decreased [Unknown]
  - Product substitution issue [Unknown]
  - Product colour issue [Unknown]
  - Product use in unapproved indication [Unknown]
